FAERS Safety Report 9145621 (Version 1)
Quarter: 2013Q1

REPORT INFORMATION
  Report Type: Spontaneous
  Country: US (occurrence: None)
  Receive Date: 20130227
  Receipt Date: 20130227
  Transmission Date: 20140127
  Serious: Yes (Death)
  Sender: FDA-Public Use
  Company Number: SYM-2013-00090

PATIENT
  Age: 44 Year
  Sex: Female

DRUGS (7)
  1. DIAZEPAM (DIAZEPAM) (DIAZEPAM) [Suspect]
     Indication: PRODUCT USED FOR UNKNOWN INDICATION
     Dosage: ORAL
     Route: 048
  2. LORAZEPAM (LORAZEPAM) (LORAZEPAM) [Suspect]
     Indication: PRODUCT USED FOR UNKNOWN INDICATION
     Dosage: ORAL
     Route: 048
  3. ZOLPIDEM (ZOLPIDEM) (ZOLPIDEM) [Suspect]
     Indication: PRODUCT USED FOR UNKNOWN INDICATION
     Dosage: ORAL
     Route: 048
  4. OXYCODONE (OXYCODONE) (OXYCODONE) [Suspect]
     Indication: PRODUCT USED FOR UNKNOWN INDICATION
     Dosage: ORAL
     Route: 048
  5. AMITRIPTYLINE (AMITRIPTYLINE) (AMITRIPTYLINE) [Suspect]
     Indication: PRODUCT USED FOR UNKNOWN INDICATION
     Dosage: ORAL
     Route: 048
  6. PROXETINE (PAROXETINE) (PAROXETINE) [Suspect]
     Indication: PRODUCT USED FOR UNKNOWN INDICATION
     Dosage: ORAL
     Route: 048
  7. DIPHENHYDRAMINE (DIPHENHYDRAMINE) (DIPHENHYDRAMINE) [Suspect]
     Dosage: ORAL
     Route: 048

REACTIONS (2)
  - Toxicity to various agents [None]
  - Drug abuse [None]
